FAERS Safety Report 6219885-1 (Version None)
Quarter: 2009Q2

REPORT INFORMATION
  Report Type: 
  Country: None (occurrence: None)
  Receive Date: 20090609
  Receipt Date: 20090529
  Transmission Date: 20091009
  Serious: Yes (Life-Threatening, Hospitalization, Disabling, Other)
  Sender: FDA-Public Use
  Company Number: US-MERCK-0704USA05892

PATIENT
  Age: 59 Year
  Sex: Female

DRUGS (12)
  1. FOSAMAX [Suspect]
     Indication: OSTEOPOROSIS
     Route: 048
     Dates: start: 19980101, end: 20010101
  2. FOSAMAX [Suspect]
     Route: 048
     Dates: start: 20010101, end: 20050601
  3. FOSAMAX [Suspect]
     Route: 048
     Dates: start: 20040101
  4. ACCUPRIL [Concomitant]
     Route: 065
     Dates: start: 19980501, end: 20020501
  5. AZATHIOPRINE [Concomitant]
     Route: 065
     Dates: start: 19971101, end: 20031001
  6. CHOLESTYRAMINE RESIN [Concomitant]
     Route: 065
     Dates: start: 19990101, end: 19990401
  7. METOPROLOL [Concomitant]
     Route: 065
     Dates: start: 19980301, end: 20020301
  8. NEORAL [Concomitant]
     Route: 065
     Dates: start: 19980101, end: 19990101
  9. GUAIFED [Concomitant]
     Route: 065
     Dates: start: 19981101
  10. LIDEX [Concomitant]
     Route: 065
     Dates: start: 19980101
  11. TRIAMTERENE [Concomitant]
     Route: 065
     Dates: start: 19980401
  12. METHOTREXATE [Concomitant]
     Route: 065
     Dates: start: 19970801, end: 19991101

REACTIONS (43)
  - ADVERSE DRUG REACTION [None]
  - ALOPECIA [None]
  - BACTERIAL INFECTION [None]
  - BLOOD CHOLESTEROL [None]
  - BRONCHITIS [None]
  - CACHEXIA [None]
  - CANDIDIASIS [None]
  - CARDIAC FAILURE CONGESTIVE [None]
  - DEEP VEIN THROMBOSIS [None]
  - DIABETES MELLITUS [None]
  - DUODENAL ULCER [None]
  - DYSPHAGIA [None]
  - EYE INFECTION [None]
  - FRACTURE [None]
  - FUNGAL INFECTION [None]
  - GASTROENTERITIS VIRAL [None]
  - GASTROOESOPHAGEAL REFLUX DISEASE [None]
  - GOUT [None]
  - HERPES SIMPLEX [None]
  - HYPERLIPIDAEMIA [None]
  - HYPERTENSION [None]
  - INFLUENZA [None]
  - JAW FRACTURE [None]
  - LEUKOPENIA [None]
  - LUMBAR VERTEBRAL FRACTURE [None]
  - LUNG NEOPLASM [None]
  - MALAISE [None]
  - MOUTH ULCERATION [None]
  - MUCOSAL INFLAMMATION [None]
  - NASOPHARYNGITIS [None]
  - ORAL DISORDER [None]
  - ORAL HERPES [None]
  - OSTEOMYELITIS [None]
  - OSTEONECROSIS [None]
  - PARESIS CRANIAL NERVE [None]
  - PHOTOSENSITIVITY REACTION [None]
  - SINUSITIS [None]
  - SKIN ULCER [None]
  - SPEECH DISORDER [None]
  - SPINAL COLUMN STENOSIS [None]
  - SPINAL COMPRESSION FRACTURE [None]
  - TONGUE ULCERATION [None]
  - WEIGHT DECREASED [None]
